FAERS Safety Report 8966534 (Version 1)
Quarter: 2012Q4

REPORT INFORMATION
  Report Type: 
  Country: US (occurrence: US)
  Receive Date: 20121217
  Receipt Date: 20121217
  Transmission Date: 20130627
  Serious: Yes (Other)
  Sender: FDA-Public Use
  Company Number: US-PFIZER INC-2012316605

PATIENT
  Age: 11 Year
  Sex: Male

DRUGS (2)
  1. GEODON [Suspect]
     Dosage: 20 mg, 2x/day
  2. GEODON [Suspect]
     Dosage: 40 mg, UNK

REACTIONS (3)
  - Suicidal ideation [Unknown]
  - Drug administered to patient of inappropriate age [Unknown]
  - Tardive dyskinesia [Unknown]
